FAERS Safety Report 5347378-2 (Version None)
Quarter: 2007Q2

REPORT INFORMATION
  Report Type: 
  Country: None (occurrence: None)
  Receive Date: 20070507
  Receipt Date: 20061106
  Transmission Date: 20071010
  Serious: Yes (Hospitalization)
  Sender: FDA-Public Use
  Company Number: 32038

PATIENT
  Age: 56 Year
  Sex: Female

DRUGS (1)
  1. ADRIAMYCIN PFS [Suspect]
     Indication: BREAST CANCER
     Dosage: 100MG/IV
     Route: 042
     Dates: start: 20061003

REACTIONS (1)
  - FEBRILE NEUTROPENIA [None]
